FAERS Safety Report 9999626 (Version 1)
Quarter: 2014Q1

REPORT INFORMATION
  Report Type: Spontaneous
  Country: DK (occurrence: DE)
  Receive Date: 20140312
  Receipt Date: 20140312
  Transmission Date: 20141002
  Serious: Yes (Congenital Anomaly, Other)
  Sender: FDA-Public Use
  Company Number: DE-FRI-1000060515

PATIENT
  Age: 0 Day
  Sex: Female
  Weight: 3.28 kg

DRUGS (4)
  1. CITALOPRAM [Suspect]
     Dosage: 40 MG
     Route: 064
  2. CITALOPRAM [Suspect]
     Dosage: 20 MG
     Route: 064
  3. FOLIC ACID [Concomitant]
     Route: 064
  4. THYMIAN [Concomitant]
     Route: 064

REACTIONS (3)
  - Motor developmental delay [Unknown]
  - Dermoid cyst [Not Recovered/Not Resolved]
  - Foetal exposure during pregnancy [Unknown]
